FAERS Safety Report 4521274-2 (Version None)
Quarter: 2004Q4

REPORT INFORMATION
  Report Type: 
  Country: None (occurrence: None)
  Receive Date: 20041208
  Receipt Date: 20041102
  Transmission Date: 20050328
  Serious: Yes (Other)
  Sender: FDA-Public Use
  Company Number: JP-GLAXOSMITHKLINE-B0351020A

PATIENT
  Age: 34 Year
  Sex: Female
  Weight: 53 kg

DRUGS (3)
  1. PAXIL [Suspect]
     Indication: DEPRESSION
     Dosage: 20MG TWICE PER DAY
     Route: 048
     Dates: start: 20040518
  2. LEXOTAN [Suspect]
     Dosage: 2MG TWICE PER DAY
     Route: 048
     Dates: start: 20040430
  3. NAUZELIN [Suspect]
     Dosage: 10MG TWICE PER DAY
     Dates: start: 20040518

REACTIONS (6)
  - ANAEMIA [None]
  - FACE OEDEMA [None]
  - OEDEMA [None]
  - OEDEMA PERIPHERAL [None]
  - OVARIAN CYST [None]
  - PLEURAL EFFUSION [None]
